FAERS Safety Report 23998627 (Version 1)
Quarter: 2024Q2

REPORT INFORMATION
  Report Type: Spontaneous
  Country: JP (occurrence: JP)
  Receive Date: 20240621
  Receipt Date: 20240621
  Transmission Date: 20240716
  Serious: Yes (Other)
  Sender: FDA-Public Use
  Company Number: JP-MLMSERVICE-20240607-PI091783-00118-1

PATIENT
  Age: 4 Decade
  Sex: Female
  Weight: 57.2 kg

DRUGS (11)
  1. REMERON [Suspect]
     Active Substance: MIRTAZAPINE
     Dosage: UNK
     Route: 048
  2. DEXTROMETHORPHAN [Suspect]
     Active Substance: DEXTROMETHORPHAN
     Dosage: LARGE AMOUNT OF DXM MAY HAVE BEEN INGESTED
     Route: 048
  3. CHLORPHENESIN [Concomitant]
     Active Substance: CHLORPHENESIN
  4. FLUNITRAZEPAM [Concomitant]
     Active Substance: FLUNITRAZEPAM
  5. TRANEXAMIC ACID [Concomitant]
     Active Substance: TRANEXAMIC ACID
  6. NITRAZEPAM [Concomitant]
     Active Substance: NITRAZEPAM
  7. KETOPROFEN [Concomitant]
     Active Substance: KETOPROFEN
  8. VALPROIC ACID [Concomitant]
     Active Substance: VALPROIC ACID
  9. BROTIZOLAM [Concomitant]
     Active Substance: BROTIZOLAM
  10. PROPRANOLOL [Concomitant]
     Active Substance: PROPRANOLOL HYDROCHLORIDE
  11. ALPRAZOLAM [Concomitant]
     Active Substance: ALPRAZOLAM

REACTIONS (1)
  - Drug interaction [Unknown]
